FAERS Safety Report 21329215 (Version 1)
Quarter: 2022Q3

REPORT INFORMATION
  Report Type: Spontaneous
  Country: US (occurrence: None)
  Receive Date: 20220913
  Receipt Date: 20220913
  Transmission Date: 20221026
  Serious: Yes (Hospitalization)
  Sender: FDA-Public Use
  Company Number: None

PATIENT
  Age: 79 Year
  Sex: Male

DRUGS (2)
  1. APIXABAN [Suspect]
     Active Substance: APIXABAN
     Indication: Atrial fibrillation
     Dosage: FREQUENCY : TWICE A DAY;?
     Dates: start: 20161215
  2. CITALOPRAM HYDROBROMIDE [Suspect]
     Active Substance: CITALOPRAM HYDROBROMIDE
     Indication: Depression
     Dosage: FREQUENCY : DAILY;?
     Dates: start: 20170727, end: 20201119

REACTIONS (5)
  - Gastrointestinal haemorrhage [None]
  - Product use issue [None]
  - Haemoglobin decreased [None]
  - Chronic gastritis [None]
  - Anaemia [None]

NARRATIVE: CASE EVENT DATE: 20201109
